FAERS Safety Report 13856178 (Version 1)
Quarter: 2017Q3

REPORT INFORMATION
  Report Type: Spontaneous
  Country: US (occurrence: US)
  Receive Date: 20170810
  Receipt Date: 20170810
  Transmission Date: 20171127
  Serious: Yes (Other)
  Sender: FDA-Public Use
  Company Number: US-FERRINGPH-2017FE00008

PATIENT
  Age: 41 Year
  Sex: Female
  Weight: 91 kg

DRUGS (6)
  1. PROGESTERONE. [Concomitant]
     Active Substance: PROGESTERONE
     Indication: INFERTILITY
  2. ESTRACE [Concomitant]
     Active Substance: ESTRADIOL
     Indication: INFERTILITY
     Route: 048
  3. FOLIC ACID. [Concomitant]
     Active Substance: FOLIC ACID
     Indication: PRODUCT USED FOR UNKNOWN INDICATION
     Route: 065
  4. PRENATAL VITAMINS                  /02014401/ [Concomitant]
     Active Substance: VITAMINS
     Indication: PRODUCT USED FOR UNKNOWN INDICATION
     Route: 065
  5. VITAMIN D                          /00107901/ [Concomitant]
     Active Substance: ERGOCALCIFEROL
     Indication: PRODUCT USED FOR UNKNOWN INDICATION
     Route: 065
  6. ENDOMETRIN [Suspect]
     Active Substance: PROGESTERONE
     Indication: SUPPLEMENTATION THERAPY
     Dosage: 100 MG, 2 TIMES DAILY
     Route: 067
     Dates: start: 20161110

REACTIONS (3)
  - Uterine haemorrhage [Recovered/Resolved]
  - Wrong technique in product usage process [Not Recovered/Not Resolved]
  - Uterine haematoma [Not Recovered/Not Resolved]

NARRATIVE: CASE EVENT DATE: 20161223
